FAERS Safety Report 10010152 (Version 1)
Quarter: 2014Q1

REPORT INFORMATION
  Report Type: Spontaneous
  Country: US (occurrence: US)
  Receive Date: 20140312
  Receipt Date: 20140312
  Transmission Date: 20141002
  Serious: No
  Sender: FDA-Public Use
  Company Number: US-INCYTE CORPORATION-2013IN001694

PATIENT
  Age: 72 Year
  Sex: Female
  Weight: 45.35 kg

DRUGS (2)
  1. JAKAFI [Suspect]
     Indication: MYELOFIBROSIS
     Dosage: 10 MG, BID
     Route: 048
     Dates: start: 20120914, end: 201211
  2. JAKAFI [Suspect]
     Dosage: UNK
     Route: 048
     Dates: start: 20130717, end: 20130729

REACTIONS (2)
  - Hypoaesthesia [Not Recovered/Not Resolved]
  - Anaemia [Unknown]
